FAERS Safety Report 17482426 (Version 1)
Quarter: 2020Q1

REPORT INFORMATION
  Report Type: Report from Study
  Country: US (occurrence: US)
  Receive Date: 20200302
  Receipt Date: 20200302
  Transmission Date: 20200409
  Serious: Yes (Death)
  Sender: FDA-Public Use
  Company Number: US-ROCHE-2555897

PATIENT
  Sex: Female

DRUGS (2)
  1. HERCEPTIN [Suspect]
     Active Substance: TRASTUZUMAB
     Indication: BREAST CANCER FEMALE
     Dosage: VIAL, 150 MG, INFUSE 450 MG INTRAVENOUSLY EVERY 21 DAY(S) AS DIRECTED.
     Route: 041
  2. HERCEPTIN [Suspect]
     Active Substance: TRASTUZUMAB
     Indication: BONE CANCER
     Dosage: DATE OF SERVICE 23/JAN/2020
     Route: 041

REACTIONS (1)
  - Death [Fatal]
